FAERS Safety Report 13630120 (Version 1)
Quarter: 2017Q2

REPORT INFORMATION
  Report Type: Spontaneous
  Country: US (occurrence: US)
  Receive Date: 20170531
  Receipt Date: 20170531
  Transmission Date: 20170830
  Serious: No
  Sender: FDA-Public Use
  Company Number: US-ASTELLAS-1281357

PATIENT
  Sex: Male

DRUGS (9)
  1. TARCEVA [Suspect]
     Active Substance: ERLOTINIB HYDROCHLORIDE
     Indication: LUNG CANCER METASTATIC
     Route: 048
     Dates: end: 20130916
  2. FENTANYL. [Concomitant]
     Active Substance: FENTANYL
  3. ALBUTEROL. [Concomitant]
     Active Substance: ALBUTEROL
  4. IPRATROPIUM BROMIDE. [Concomitant]
     Active Substance: IPRATROPIUM BROMIDE
  5. HYDROCODONE HCL [Concomitant]
  6. EXFORGE [Concomitant]
     Active Substance: AMLODIPINE BESYLATE\VALSARTAN
  7. AUGMENTINE PLUS [Concomitant]
     Active Substance: AMOXICILLIN\CLAVULANIC ACID
  8. NITROGLYCERIN. [Concomitant]
     Active Substance: NITROGLYCERIN
  9. LASIX [Concomitant]
     Active Substance: FUROSEMIDE

REACTIONS (1)
  - Disease progression [Not Recovered/Not Resolved]
